FAERS Safety Report 15923520 (Version 2)
Quarter: 2019Q1

REPORT INFORMATION
  Report Type: Spontaneous
  Country: US (occurrence: US)
  Receive Date: 20190205
  Receipt Date: 20190219
  Transmission Date: 20190417
  Serious: No
  Sender: FDA-Public Use
  Company Number: US-ALLERGAN-1822732US

PATIENT
  Sex: Female

DRUGS (2)
  1. ESTRACE [Concomitant]
     Active Substance: ESTRADIOL
     Indication: PRODUCT USED FOR UNKNOWN INDICATION
     Dosage: UNK
     Route: 048
  2. BOTOX [Suspect]
     Active Substance: ONABOTULINUMTOXINA
     Indication: TORTICOLLIS
     Dosage: UNK UNK, SINGLE
     Route: 030
     Dates: start: 20180412, end: 20180412

REACTIONS (6)
  - General physical condition abnormal [Not Recovered/Not Resolved]
  - Visual impairment [Not Recovered/Not Resolved]
  - Neck pain [Unknown]
  - Vision blurred [Not Recovered/Not Resolved]
  - Disorientation [Unknown]
  - Hypokinesia [Unknown]
